FAERS Safety Report 23832795 (Version 1)
Quarter: 2024Q2

REPORT INFORMATION
  Report Type: Spontaneous
  Country: US (occurrence: None)
  Receive Date: 20240507
  Receipt Date: 20240507
  Transmission Date: 20240716
  Serious: Yes (Hospitalization)
  Sender: FDA-Public Use
  Company Number: None

PATIENT
  Age: 65 Year
  Sex: Male
  Weight: 122 kg

DRUGS (1)
  1. SACUBITRIL\VALSARTAN [Suspect]
     Active Substance: SACUBITRIL\VALSARTAN
     Dosage: ONE-HALF  BID PO? ?
     Route: 048
     Dates: start: 20220805, end: 20220912

REACTIONS (3)
  - Acute kidney injury [None]
  - Hyperkalaemia [None]
  - Respiratory failure [None]

NARRATIVE: CASE EVENT DATE: 20220912
